FAERS Safety Report 7489905-5 (Version None)
Quarter: 2011Q2

REPORT INFORMATION
  Report Type: 
  Country: None (occurrence: None)
  Receive Date: 20110512
  Receipt Date: 20110429
  Transmission Date: 20111010
  Serious: Yes (Death, Hospitalization)
  Sender: FDA-Public Use
  Company Number: 2011CP000069

PATIENT
  Age: 69 Year
  Sex: Female

DRUGS (12)
  1. NICARDIPINE HCL [Concomitant]
  2. LEVOTHYROXINE SODIUM [Concomitant]
  3. BEVACIZUMAB (BEVACIZUMAB) [Suspect]
  4. DIPRIVAN [Suspect]
     Dosage: ; IV
     Route: 042
     Dates: start: 20101029
  5. RAPIFEN (ALFENTANYL HCL) (NO PREF. NAME) [Suspect]
     Dosage: ; IV
     Route: 042
     Dates: start: 20101030, end: 20101031
  6. ACETAMINOPHEN [Suspect]
     Dosage: 4 GM; 1 DAY; IV
     Route: 042
     Dates: start: 20101030, end: 20101031
  7. NIMBEX [Suspect]
     Dosage: ; IV
     Route: 042
     Dates: start: 20101029
  8. CEFUROXIME [Suspect]
     Dosage: 1500 MG;
     Dates: start: 20101029
  9. TAXOTERE [Suspect]
  10. NOCTRAN [Concomitant]
  11. MORPHINE SULFATE [Suspect]
     Dosage: ; PO
     Route: 048
     Dates: start: 20101030, end: 20101031
  12. CALCIPARINE [Suspect]
     Dosage: ; SC
     Route: 058
     Dates: start: 20101029, end: 20101101

REACTIONS (10)
  - COMA [None]
  - INTESTINAL ISCHAEMIA [None]
  - FLUID OVERLOAD [None]
  - ARTERIAL THROMBOSIS [None]
  - FATIGUE [None]
  - PYREXIA [None]
  - RENAL IMPAIRMENT [None]
  - MULTI-ORGAN FAILURE [None]
  - RESPIRATORY DISTRESS [None]
  - BLOOD SODIUM INCREASED [None]
